FAERS Safety Report 9647989 (Version 1)
Quarter: 2013Q4

REPORT INFORMATION
  Report Type: Spontaneous
  Country: US (occurrence: US)
  Receive Date: 20131028
  Receipt Date: 20131028
  Transmission Date: 20140711
  Serious: No
  Sender: FDA-Public Use
  Company Number: US-PFIZER INC-2013303462

PATIENT
  Age: 56 Year
  Sex: Female
  Weight: 91 kg

DRUGS (5)
  1. CHANTIX [Suspect]
     Indication: SMOKING CESSATION THERAPY
     Dosage: 0.5 MG, 2X/DAY
     Route: 048
     Dates: start: 201310, end: 201310
  2. CHANTIX [Suspect]
     Dosage: 1 MG, 2X/DAY
     Route: 048
     Dates: start: 201310, end: 20131021
  3. LEVOTHYROXINE [Concomitant]
     Indication: HYPOTHYROIDISM
     Dosage: 112 UG, UNK
  4. SOLU-MEDROL [Concomitant]
     Dosage: UNK
  5. CYTOMEL [Concomitant]
     Dosage: UNK

REACTIONS (1)
  - Urticaria [Not Recovered/Not Resolved]
